FAERS Safety Report 6450914-6 (Version None)
Quarter: 2009Q4

REPORT INFORMATION
  Report Type: 
  Country: None (occurrence: None)
  Receive Date: 20091123
  Receipt Date: 20091113
  Transmission Date: 20100525
  Serious: Yes (Hospitalization)
  Sender: FDA-Public Use
  Company Number: A0752854A

PATIENT
  Age: 65 Year
  Sex: Female

DRUGS (16)
  1. SERETIDE [Suspect]
     Indication: CHRONIC OBSTRUCTIVE PULMONARY DISEASE
     Route: 055
     Dates: start: 20080910, end: 20081007
  2. ADVAIR DISKUS 100/50 [Suspect]
     Indication: DRUG USE FOR UNKNOWN INDICATION
     Route: 065
  3. OXYGEN [Concomitant]
     Dosage: 2PCT AT NIGHT
  4. ALBUTEROL [Concomitant]
  5. DIAVAN [Concomitant]
  6. NEXIUM [Concomitant]
  7. AMBIEN [Concomitant]
  8. SPIRIVA [Concomitant]
  9. FISH OIL [Concomitant]
  10. WARFARIN [Concomitant]
  11. ZOLPIDEM [Concomitant]
  12. EXFORGE [Concomitant]
  13. VITAMIN D [Concomitant]
  14. UNSPECIFIED MEDICATION [Concomitant]
  15. ALEVE [Concomitant]
  16. TYLENOL (CAPLET) [Concomitant]

REACTIONS (15)
  - AMNESIA [None]
  - CHEST DISCOMFORT [None]
  - CHEST PAIN [None]
  - DYSPNOEA [None]
  - FLUSHING [None]
  - GAIT DISTURBANCE [None]
  - HYPOAESTHESIA FACIAL [None]
  - INSOMNIA [None]
  - LOCAL SWELLING [None]
  - MEMORY IMPAIRMENT [None]
  - ORAL CANDIDIASIS [None]
  - ORAL DISCOMFORT [None]
  - ORAL DISORDER [None]
  - PARAESTHESIA [None]
  - PULMONARY EMBOLISM [None]
